FAERS Safety Report 11671009 (Version 2)
Quarter: 2015Q4

REPORT INFORMATION
  Report Type: Report from Study
  Country: FR (occurrence: FR)
  Receive Date: 20151028
  Receipt Date: 20151202
  Transmission Date: 20160304
  Serious: Yes (Life-Threatening)
  Sender: FDA-Public Use
  Company Number: FR-ROCHE-1651616

PATIENT
  Age: 63 Year
  Sex: Female
  Weight: 76 kg

DRUGS (4)
  1. TRASTUZUMAB [Suspect]
     Active Substance: TRASTUZUMAB
     Indication: HER-2 POSITIVE BREAST CANCER
     Route: 042
     Dates: start: 20150318, end: 20150910
  2. TRASTUZUMAB [Suspect]
     Active Substance: TRASTUZUMAB
     Route: 042
     Dates: start: 20151118
  3. LETROZOLE. [Concomitant]
     Active Substance: LETROZOLE
     Route: 048
     Dates: start: 201507
  4. INEXIUM [Concomitant]
     Active Substance: ESOMEPRAZOLE
     Route: 048

REACTIONS (1)
  - Pancreatitis [Recovered/Resolved]

NARRATIVE: CASE EVENT DATE: 20150916
